FAERS Safety Report 24031838 (Version 1)
Quarter: 2024Q2

REPORT INFORMATION
  Report Type: Spontaneous
  Country: US (occurrence: US)
  Receive Date: 20240629
  Receipt Date: 20240629
  Transmission Date: 20240715
  Serious: Yes (Death)
  Sender: FDA-Public Use
  Company Number: US-AMGEN-USASP2024124475

PATIENT

DRUGS (2)
  1. PREDNISONE [Suspect]
     Active Substance: PREDNISONE
     Indication: Acute graft versus host disease
     Dosage: 60 MILLIGRAM/SQ. METER, QD, THRICE DIVIDED DOSES, FOR SEVEN CONSECUTIVE DAYS
     Route: 048
  2. PREDNISONE [Suspect]
     Active Substance: PREDNISONE
     Dosage: UNK, DAILY OR TWICE DAILY, PREDNISONE FOR 7 DAYS
     Route: 048

REACTIONS (2)
  - Death [Fatal]
  - Therapy partial responder [Unknown]
